FAERS Safety Report 21264939 (Version 2)
Quarter: 2022Q3

REPORT INFORMATION
  Report Type: Spontaneous
  Country: BR (occurrence: BR)
  Receive Date: 20220829
  Receipt Date: 20220926
  Transmission Date: 20221026
  Serious: Yes (Hospitalization, Other)
  Sender: FDA-Public Use
  Company Number: BR-AMGEN-BRASP2022145044

PATIENT
  Age: 90 Year
  Sex: Female

DRUGS (1)
  1. PROLIA [Suspect]
     Active Substance: DENOSUMAB
     Indication: Product used for unknown indication
     Dosage: UNK
     Route: 065

REACTIONS (5)
  - Spinal compression fracture [Recovering/Resolving]
  - Pulmonary thrombosis [Recovering/Resolving]
  - Fall [Unknown]
  - Functional gastrointestinal disorder [Unknown]
  - Spinal osteoarthritis [Recovering/Resolving]
